FAERS Safety Report 13195979 (Version 1)
Quarter: 2017Q1

REPORT INFORMATION
  Report Type: Spontaneous
  Country: US (occurrence: US)
  Receive Date: 20170208
  Receipt Date: 20170208
  Transmission Date: 20170428
  Serious: No
  Sender: FDA-Public Use
  Company Number: US-WEST-WARD PHARMACEUTICALS CORP.-US-H14001-16-02549

PATIENT
  Sex: Male

DRUGS (1)
  1. ALOSETRON [Suspect]
     Active Substance: ALOSETRON
     Indication: GASTROINTESTINAL BACTERIAL INFECTION
     Route: 065

REACTIONS (2)
  - Product use issue [Recovered/Resolved]
  - Diarrhoea [Recovered/Resolved]
